FAERS Safety Report 6538987-3 (Version None)
Quarter: 2010Q1

REPORT INFORMATION
  Report Type: 
  Country: None (occurrence: None)
  Receive Date: 20100107
  Receipt Date: 20091009
  Transmission Date: 20100710
  Serious: Yes (Hospitalization)
  Sender: FDA-Public Use
  Company Number: 2009026897

PATIENT
  Sex: Female

DRUGS (1)
  1. ROGAINE [Suspect]
     Indication: DRUG USE FOR UNKNOWN INDICATION
     Dosage: TOPICAL
     Route: 061

REACTIONS (3)
  - APPLICATION SITE IRRITATION [None]
  - DRUG INEFFECTIVE [None]
  - WRONG DRUG ADMINISTERED [None]
